FAERS Safety Report 23841475 (Version 1)
Quarter: 2024Q2

REPORT INFORMATION
  Report Type: Spontaneous
  Country: CN (occurrence: CN)
  Receive Date: 20240510
  Receipt Date: 20240510
  Transmission Date: 20240716
  Serious: Yes (Life-Threatening, Hospitalization, Disabling, Other)
  Sender: FDA-Public Use
  Company Number: CN-BEIGENE-BGN-2024-007019

PATIENT

DRUGS (3)
  1. TISLELIZUMAB [Suspect]
     Active Substance: TISLELIZUMAB
     Indication: Oesophageal carcinoma
     Dosage: 200 MILLIGRAM
     Route: 041
     Dates: start: 20240418
  2. NEDAPLATIN [Suspect]
     Active Substance: NEDAPLATIN
     Indication: Oesophageal carcinoma
     Dosage: 100 MILLIGRAM
     Route: 041
     Dates: start: 20240419
  3. PACLITAXEL [Suspect]
     Active Substance: PACLITAXEL
     Indication: Oesophageal carcinoma
     Dosage: 300 MILLIGRAM
     Route: 041
     Dates: start: 20240418

REACTIONS (3)
  - Myelosuppression [Recovering/Resolving]
  - Septic shock [Recovering/Resolving]
  - Infectious pleural effusion [Unknown]

NARRATIVE: CASE EVENT DATE: 20240423
